FAERS Safety Report 11541898 (Version 1)
Quarter: 2015Q3

REPORT INFORMATION
  Report Type: Spontaneous
  Country: US (occurrence: US)
  Receive Date: 20150923
  Receipt Date: 20150923
  Transmission Date: 20151125
  Serious: Yes (Death)
  Sender: FDA-Public Use
  Company Number: US-CELGENE-USA-2015094051

PATIENT
  Age: 73 Year
  Sex: Male

DRUGS (1)
  1. REVLIMID [Suspect]
     Active Substance: LENALIDOMIDE
     Indication: LYMPHOMA
     Dosage: 15 MILLIGRAM
     Route: 048
     Dates: start: 201507

REACTIONS (1)
  - Death [Fatal]

NARRATIVE: CASE EVENT DATE: 20150906
